FAERS Safety Report 24652367 (Version 1)
Quarter: 2024Q4

REPORT INFORMATION
  Report Type: Spontaneous
  Country: CN (occurrence: CN)
  Receive Date: 20241122
  Receipt Date: 20241122
  Transmission Date: 20250115
  Serious: Yes (Life-Threatening, Hospitalization)
  Sender: BAYER HEALTHCARE PHARMACEUTICALS INC.
  Company Number: CN-BAYER-2024A165851

PATIENT
  Age: 37 Year
  Sex: Female

DRUGS (1)
  1. ULTRAVIST [Suspect]
     Active Substance: IOPROMIDE
     Indication: Abdomen scan
     Dosage: 80 ML, ONCE
     Route: 042
     Dates: start: 20241118, end: 20241118

REACTIONS (8)
  - Suffocation feeling [Recovering/Resolving]
  - Cyanosis [Recovered/Resolved]
  - Chest discomfort [Recovering/Resolving]
  - Tachypnoea [Recovering/Resolving]
  - Dysphoria [Recovering/Resolving]
  - Blood pressure immeasurable [Recovering/Resolving]
  - Rash [Recovering/Resolving]
  - Chills [Recovering/Resolving]

NARRATIVE: CASE EVENT DATE: 20241118
